FAERS Safety Report 16908737 (Version 1)
Quarter: 2019Q4

REPORT INFORMATION
  Report Type: Spontaneous
  Country: US (occurrence: US)
  Receive Date: 20191011
  Receipt Date: 20191011
  Transmission Date: 20200122
  Serious: Yes (Hospitalization)
  Sender: FDA-Public Use
  Company Number: US-PROCTER_AND_GAMBLE-GS19106310

PATIENT

DRUGS (1)
  1. NYQUIL NOS [Suspect]
     Active Substance: ACETAMINOPHEN\CHLORPHENIRAMINE\DEXTROMETHORPHAN\DIPHENHYDRAMINE\DOXYLAMINE\PSEUDOEPHEDRINE
     Route: 050

REACTIONS (4)
  - Intentional product misuse [Unknown]
  - Incorrect route of product administration [Unknown]
  - Exposure via blood [Unknown]
  - No adverse event [Unknown]
